FAERS Safety Report 19139278 (Version 1)
Quarter: 2021Q2

REPORT INFORMATION
  Report Type: Spontaneous
  Country: US (occurrence: US)
  Receive Date: 20210414
  Receipt Date: 20210414
  Transmission Date: 20210717
  Serious: Yes (Death)
  Sender: FDA-Public Use
  Company Number: None

PATIENT
  Age: 71 Year
  Sex: Female

DRUGS (1)
  1. POMALYST [Suspect]
     Active Substance: POMALIDOMIDE
     Indication: PLASMA CELL MYELOMA
     Route: 048
     Dates: start: 20200818, end: 20210116

REACTIONS (3)
  - Gastrointestinal haemorrhage [None]
  - Mental status changes [None]
  - Immunodeficiency [None]

NARRATIVE: CASE EVENT DATE: 20210116
